FAERS Safety Report 9357418 (Version 1)
Quarter: 2013Q2

REPORT INFORMATION
  Report Type: Spontaneous
  Country: FR (occurrence: FR)
  Receive Date: 20130620
  Receipt Date: 20130620
  Transmission Date: 20140414
  Serious: Yes (Other)
  Sender: FDA-Public Use
  Company Number: FR-JNJFOC-20130607641

PATIENT
  Sex: 0

DRUGS (2)
  1. XARELTO [Suspect]
     Indication: THROMBOSIS PROPHYLAXIS
     Route: 048
  2. XARELTO [Suspect]
     Indication: ORTHOPAEDIC PROCEDURE
     Route: 048

REACTIONS (2)
  - Venous thrombosis [Unknown]
  - Drug ineffective [Unknown]
